FAERS Safety Report 7809946-5 (Version None)
Quarter: 2011Q4

REPORT INFORMATION
  Report Type: 
  Country: None (occurrence: None)
  Receive Date: 20111012
  Receipt Date: 20111010
  Transmission Date: 20120403
  Serious: No
  Sender: FDA-Public Use
  Company Number: US-PFIZER INC-2011203340

PATIENT
  Sex: Male
  Weight: 74.83 kg

DRUGS (3)
  1. NEXIUM [Concomitant]
     Indication: GASTROOESOPHAGEAL REFLUX DISEASE
     Dosage: 40 MG, DAILY
  2. CLARITIN [Concomitant]
     Indication: HYPERSENSITIVITY
     Dosage: 10 MG, UNK
  3. LIPITOR [Suspect]
     Indication: BLOOD CHOLESTEROL ABNORMAL
     Dosage: 10 MG, DAILY
     Route: 048
     Dates: end: 20110101

REACTIONS (7)
  - HEPATIC ENZYME INCREASED [None]
  - ARTHRALGIA [None]
  - JOINT SWELLING [None]
  - MOBILITY DECREASED [None]
  - VIRAL INFECTION [None]
  - PAIN IN EXTREMITY [None]
  - OEDEMA PERIPHERAL [None]
